FAERS Safety Report 5204343-3 (Version None)
Quarter: 2007Q1

REPORT INFORMATION
  Report Type: 
  Country: None (occurrence: None)
  Receive Date: 20070110
  Receipt Date: 20060223
  Transmission Date: 20070707
  Serious: No
  Sender: FDA-Public Use
  Company Number: US-BRISTOL-MYERS SQUIBB COMPANY-13293832

PATIENT
  Age: 24 Year
  Sex: Female

DRUGS (1)
  1. ABILIFY [Suspect]
     Route: 048
     Dates: start: 20051201, end: 20051201

REACTIONS (2)
  - NAUSEA [None]
  - VOMITING [None]
